FAERS Safety Report 9547526 (Version 1)
Quarter: 2013Q3

REPORT INFORMATION
  Report Type: Spontaneous
  Country: US (occurrence: None)
  Receive Date: 20130705
  Receipt Date: 20130705
  Transmission Date: 20140515
  Serious: Yes (Death)
  Sender: FDA-Public Use
  Company Number: 2013020108

PATIENT
  Age: 50 Year
  Sex: Male

DRUGS (5)
  1. CARISOPRODOL (CARISOPRODOL) [Suspect]
  2. METHAMPHETAMINE (METHAMPHETAMINE) [Suspect]
  3. HYDROCODONE W ACETAMINOPHEN [Suspect]
  4. DIAZEPAM (DIAZEPAM) [Suspect]
  5. VENLAFAXINE (VENLAFAXINE) [Suspect]

REACTIONS (1)
  - Drug abuse [None]
